FAERS Safety Report 12402405 (Version 1)
Quarter: 2016Q2

REPORT INFORMATION
  Report Type: Spontaneous
  Country: US (occurrence: US)
  Receive Date: 20160525
  Receipt Date: 20160525
  Transmission Date: 20160815
  Serious: No
  Sender: FDA-Public Use
  Company Number: US-SHIRE-US201606381

PATIENT

DRUGS (2)
  1. PENTASA [Suspect]
     Active Substance: MESALAMINE
     Indication: INFLAMMATORY BOWEL DISEASE
     Dosage: UNK, UNKNOWN
     Route: 048
  2. PENTASA [Suspect]
     Active Substance: MESALAMINE
     Indication: COLITIS ULCERATIVE

REACTIONS (3)
  - No adverse event [Unknown]
  - Drug administered to patient of inappropriate age [Unknown]
  - Product use issue [Unknown]
